FAERS Safety Report 11118725 (Version 1)
Quarter: 2015Q2

REPORT INFORMATION
  Report Type: Spontaneous
  Country: PL (occurrence: PL)
  Receive Date: 20150518
  Receipt Date: 20150518
  Transmission Date: 20150821
  Serious: Yes (Death, Hospitalization)
  Sender: FDA-Public Use
  Company Number: PL-SA-2015SA063462

PATIENT
  Age: 60 Year
  Sex: Female

DRUGS (3)
  1. CYCLOPHOSPHAMIDE. [Suspect]
     Active Substance: CYCLOPHOSPHAMIDE
     Indication: CHRONIC LYMPHOCYTIC LEUKAEMIA
     Route: 065
  2. FLUDARABINE PHOSPHATE. [Suspect]
     Active Substance: FLUDARABINE PHOSPHATE
     Indication: CHRONIC LYMPHOCYTIC LEUKAEMIA
     Route: 065
  3. RITUXIMAB [Suspect]
     Active Substance: RITUXIMAB
     Indication: CHRONIC LYMPHOCYTIC LEUKAEMIA
     Route: 065

REACTIONS (7)
  - Infection [Fatal]
  - Acute myeloid leukaemia [Fatal]
  - Pneumonia [Fatal]
  - Gastrointestinal haemorrhage [Fatal]
  - Pancytopenia [Fatal]
  - Myelodysplastic syndrome [Fatal]
  - Refractory anaemia with an excess of blasts [Fatal]

NARRATIVE: CASE EVENT DATE: 200908
